FAERS Safety Report 7690650-1 (Version None)
Quarter: 2011Q3

REPORT INFORMATION
  Report Type: 
  Country: None (occurrence: None)
  Receive Date: 20110812
  Receipt Date: 20110728
  Transmission Date: 20111222
  Serious: Yes (Hospitalization, Other)
  Sender: FDA-Public Use
  Company Number: 2011P1008031

PATIENT
  Age: 51 Year
  Sex: Male
  Weight: 104.3273 kg

DRUGS (2)
  1. FENTANYL-75 [Suspect]
     Indication: PAIN
     Dosage: 1 PATCH;Q72H;TDER 1 PATCH;Q48H;TDER
     Route: 062
     Dates: start: 20100101, end: 20110101
  2. FENTANYL-75 [Suspect]
     Indication: PAIN
     Dosage: 1 PATCH;Q72H;TDER 1 PATCH;Q48H;TDER
     Route: 062
     Dates: start: 20110101

REACTIONS (10)
  - INADEQUATE ANALGESIA [None]
  - DRUG WITHDRAWAL SYNDROME [None]
  - DECREASED APPETITE [None]
  - PRODUCT SUBSTITUTION ISSUE [None]
  - PAIN [None]
  - PANCREATITIS [None]
  - ABDOMINAL OPERATION [None]
  - INSOMNIA [None]
  - FEELING ABNORMAL [None]
  - INCISIONAL HERNIA [None]
